FAERS Safety Report 20026544 (Version 1)
Quarter: 2021Q4

REPORT INFORMATION
  Report Type: Spontaneous
  Country: CA (occurrence: CA)
  Receive Date: 20211102
  Receipt Date: 20211102
  Transmission Date: 20220303
  Serious: Yes (Life-Threatening, Disabling, Other)
  Sender: FDA-Public Use
  Company Number: CA-TEVA-2021-CA-1970906

PATIENT
  Age: 3 Year
  Sex: Female
  Weight: 17 kg

DRUGS (32)
  1. DOXORUBICIN HYDROCHLORIDE [Suspect]
     Active Substance: DOXORUBICIN HYDROCHLORIDE
     Indication: Acute lymphocytic leukaemia
     Route: 042
  2. METHOTREXATE [Suspect]
     Active Substance: METHOTREXATE
     Indication: Acute lymphocytic leukaemia
     Route: 037
  3. METHOTREXATE [Suspect]
     Active Substance: METHOTREXATE
     Route: 037
  4. VINCRISTINE SULFATE [Suspect]
     Active Substance: VINCRISTINE SULFATE
     Indication: Acute lymphocytic leukaemia
     Route: 040
  5. VINCRISTINE SULFATE [Suspect]
     Active Substance: VINCRISTINE SULFATE
     Route: 040
  6. CYCLOPHOSPHAMIDE [Suspect]
     Active Substance: CYCLOPHOSPHAMIDE
     Indication: Acute lymphocytic leukaemia
     Route: 042
  7. CYCLOPHOSPHAMIDE [Suspect]
     Active Substance: CYCLOPHOSPHAMIDE
     Route: 037
  8. CYCLOPHOSPHAMIDE [Suspect]
     Active Substance: CYCLOPHOSPHAMIDE
     Dosage: 50 MILLIGRAM DAILY;
     Route: 058
  9. HYDROCORTISONE [Suspect]
     Active Substance: HYDROCORTISONE
     Indication: Acute lymphocytic leukaemia
     Route: 037
  10. MERCAPTOPURINE [Suspect]
     Active Substance: MERCAPTOPURINE
     Indication: Acute lymphocytic leukaemia
     Dosage: 37.5 MILLIGRAM DAILY;
     Route: 048
  11. PEGASPARGASE [Suspect]
     Active Substance: PEGASPARGASE
     Indication: Acute lymphocytic leukaemia
     Route: 042
  12. CYTARABINE [Suspect]
     Active Substance: CYTARABINE
     Indication: Acute lymphocytic leukaemia
     Route: 037
  13. CYTARABINE [Suspect]
     Active Substance: CYTARABINE
     Dosage: 50 MILLIGRAM DAILY;
     Route: 058
  14. MELATONINE 10 MG DOUBLE ACTION [Concomitant]
  15. LORAZEPAM [Concomitant]
     Active Substance: LORAZEPAM
  16. ACETAMINOPHEN [Concomitant]
     Active Substance: ACETAMINOPHEN
     Dosage: 50 MILLIGRAM DAILY;
     Route: 058
  17. ALLOPURINOL [Concomitant]
     Active Substance: ALLOPURINOL
  18. ALTEPLASE [Concomitant]
     Active Substance: ALTEPLASE
  19. AMLODIPINE [Concomitant]
     Active Substance: AMLODIPINE BESYLATE
     Route: 065
  20. CEFTAZIDIME [Concomitant]
     Active Substance: CEFTAZIDIME
  21. CHOLECALCIFEROL [Concomitant]
     Active Substance: CHOLECALCIFEROL
  22. DEXAMETHASONE [Concomitant]
     Active Substance: DEXAMETHASONE
  23. LANSOPRAZOLE [Concomitant]
     Active Substance: LANSOPRAZOLE
  24. MESNA [Concomitant]
     Active Substance: MESNA
  25. MYCAMINE [Concomitant]
     Active Substance: MICAFUNGIN SODIUM
  26. OLANZAPINE [Concomitant]
     Active Substance: OLANZAPINE
  27. ONDANSETRON [Concomitant]
     Active Substance: ONDANSETRON
  28. PENTAMIDINE ISETHIONATE INJ 300MG/VIAL BP [Concomitant]
  29. PIPERACILLIN SODIUM\TAZOBACTAM SODIUM [Concomitant]
     Active Substance: PIPERACILLIN SODIUM\TAZOBACTAM SODIUM
  30. POLYETHYLENE GLYCOL [Concomitant]
     Active Substance: POLYETHYLENE GLYCOL
  31. RISPERIDONE [Concomitant]
     Active Substance: RISPERIDONE
  32. VANCOMYCIN [Concomitant]
     Active Substance: VANCOMYCIN

REACTIONS (4)
  - Aplastic anaemia [Unknown]
  - Neuropathy peripheral [Unknown]
  - Febrile neutropenia [Unknown]
  - Vocal cord paralysis [Unknown]
